FAERS Safety Report 18340292 (Version 7)
Quarter: 2022Q1

REPORT INFORMATION
  Report Type: Report from Study
  Country: CO (occurrence: CO)
  Receive Date: 20201002
  Receipt Date: 20220104
  Transmission Date: 20220424
  Serious: Yes (Hospitalization, Other)
  Sender: FDA-Public Use
  Company Number: CO-TAKEDA-2020TUS035412

PATIENT
  Age: 27 Year
  Sex: Male
  Weight: 78 kg

DRUGS (4)
  1. VEDOLIZUMAB [Suspect]
     Active Substance: VEDOLIZUMAB
     Indication: Colitis ulcerative
     Dosage: 300 MILLIGRAM
     Route: 042
     Dates: start: 20200702
  2. VEDOLIZUMAB [Suspect]
     Active Substance: VEDOLIZUMAB
     Dosage: 300 MILLIGRAM, Q4WEEKS
     Route: 042
     Dates: start: 20200702
  3. PREDNISOLONE [Concomitant]
     Active Substance: PREDNISOLONE
     Dosage: UNK
  4. HYDROMORPHONE [Concomitant]
     Active Substance: HYDROMORPHONE
     Dosage: UNK

REACTIONS (14)
  - Haematochezia [Recovering/Resolving]
  - Amoebic dysentery [Recovering/Resolving]
  - Depressed mood [Not Recovered/Not Resolved]
  - Vomiting [Not Recovered/Not Resolved]
  - Frequent bowel movements [Recovering/Resolving]
  - Pain [Recovering/Resolving]
  - Discouragement [Unknown]
  - Colitis ulcerative [Unknown]
  - Underweight [Unknown]
  - Dizziness [Not Recovered/Not Resolved]
  - Infection [Unknown]
  - Drug ineffective [Unknown]
  - Product administration interrupted [Unknown]
  - Off label use [Unknown]

NARRATIVE: CASE EVENT DATE: 20201003
